FAERS Safety Report 21086885 (Version 3)
Quarter: 2022Q3

REPORT INFORMATION
  Report Type: Spontaneous
  Country: US (occurrence: US)
  Receive Date: 20220715
  Receipt Date: 20220811
  Transmission Date: 20221027
  Serious: Yes (Hospitalization, Other)
  Sender: FDA-Public Use
  Company Number: US-ALK-ABELLO A/S-2022AA002178

PATIENT

DRUGS (40)
  1. QUERCUS ALBA POLLEN [Suspect]
     Active Substance: QUERCUS ALBA POLLEN
     Indication: Skin test
     Dosage: UNK
     Route: 023
     Dates: start: 20220613
  2. QUERCUS ALBA POLLEN [Suspect]
     Active Substance: QUERCUS ALBA POLLEN
     Dosage: UNK
     Route: 003
     Dates: start: 20220613
  3. PLANTAGO LANCEOLATA POLLEN [Suspect]
     Active Substance: PLANTAGO LANCEOLATA POLLEN
     Indication: Skin test
     Dosage: UNK
     Route: 023
     Dates: start: 20220613
  4. PLANTAGO LANCEOLATA POLLEN [Suspect]
     Active Substance: PLANTAGO LANCEOLATA POLLEN
     Dosage: UNK
     Route: 003
     Dates: start: 20220613
  5. AMBROSIA ARTEMISIIFOLIA POLLEN\AMBROSIA TRIFIDA POLLEN [Suspect]
     Active Substance: AMBROSIA ARTEMISIIFOLIA POLLEN\AMBROSIA TRIFIDA POLLEN
     Indication: Skin test
     Dosage: UNK
     Route: 023
     Dates: start: 20220613
  6. AMBROSIA ARTEMISIIFOLIA POLLEN\AMBROSIA TRIFIDA POLLEN [Suspect]
     Active Substance: AMBROSIA ARTEMISIIFOLIA POLLEN\AMBROSIA TRIFIDA POLLEN
     Dosage: UNK
     Route: 003
     Dates: start: 20220613
  7. DERMATOPHAGOIDES PTERONYSSINUS [Suspect]
     Active Substance: DERMATOPHAGOIDES PTERONYSSINUS
     Indication: Skin test
     Dosage: 10000 ARBITRARY UNITS
     Route: 023
     Dates: start: 20220613
  8. DERMATOPHAGOIDES PTERONYSSINUS [Suspect]
     Active Substance: DERMATOPHAGOIDES PTERONYSSINUS
     Dosage: UNK
     Route: 003
     Dates: start: 20220613
  9. DERMATOPHAGOIDES FARINAE [Suspect]
     Active Substance: DERMATOPHAGOIDES FARINAE
     Indication: Skin test
     Dosage: 10000 ARBITRARY UNITS
     Route: 023
     Dates: start: 20220613
  10. DERMATOPHAGOIDES FARINAE [Suspect]
     Active Substance: DERMATOPHAGOIDES FARINAE
     Dosage: UNK
     Route: 003
     Dates: start: 20220613
  11. PENICILLIUM NOTATUM [Suspect]
     Active Substance: PENICILLIUM CHRYSOGENUM VAR. CHRYSOGENUM
     Indication: Skin test
     Dosage: UNK
     Route: 023
     Dates: start: 20220613
  12. PENICILLIUM NOTATUM [Suspect]
     Active Substance: PENICILLIUM CHRYSOGENUM VAR. CHRYSOGENUM
     Dosage: UNK
     Route: 003
     Dates: start: 20220613
  13. ALTERNARIA ALTERNATA [Suspect]
     Active Substance: ALTERNARIA ALTERNATA
     Indication: Skin test
     Dosage: UNK
     Route: 023
     Dates: start: 20220613
  14. ALTERNARIA ALTERNATA [Suspect]
     Active Substance: ALTERNARIA ALTERNATA
     Dosage: UNK
     Route: 003
     Dates: start: 20220613
  15. SALIX NIGRA POLLEN [Suspect]
     Active Substance: SALIX NIGRA POLLEN
     Indication: Skin test
     Dosage: 1:20
     Route: 003
     Dates: start: 20220613
  16. POA PRATENSIS POLLEN [Suspect]
     Active Substance: POA PRATENSIS POLLEN
     Indication: Skin test
     Dosage: 100,000 BAU/ML
     Route: 003
     Dates: start: 20220613
  17. BETULA PENDULA POLLEN [Suspect]
     Active Substance: BETULA PENDULA POLLEN
     Indication: Skin test
     Dosage: 1:20
     Route: 003
     Dates: start: 20220613
  18. CARYA OVATA POLLEN [Suspect]
     Active Substance: CARYA OVATA POLLEN
     Indication: Skin test
     Dosage: 1:20
     Route: 003
     Dates: start: 20220613
  19. ALLERGENIC EXTRACT- REDTOP AGROSTIS ALBA [Suspect]
     Active Substance: AGROSTIS GIGANTEA POLLEN
     Indication: Skin test
     Dosage: 100,000 BAU/ML
     Route: 003
     Dates: start: 20220613
  20. PHLEUM PRATENSE POLLEN [Suspect]
     Active Substance: PHLEUM PRATENSE POLLEN
     Indication: Skin test
     Dosage: 100,000 BAU/ML
     Route: 003
     Dates: start: 20220613
  21. FELIS CATUS HAIR [Suspect]
     Active Substance: FELIS CATUS HAIR
     Indication: Skin test
     Dosage: 10,000 BAU/ML
     Route: 003
     Dates: start: 20220613
  22. HISTAMINE PHOSPHATE [Suspect]
     Active Substance: HISTAMINE PHOSPHATE
     Indication: Skin test
     Dosage: UNK
     Route: 003
     Dates: start: 20220613
  23. HISTAMINE PHOSPHATE [Suspect]
     Active Substance: HISTAMINE PHOSPHATE
     Indication: Skin test
     Dosage: UNK
     Route: 023
     Dates: start: 20220613
  24. FRAXINUS AMERICANA POLLEN [Suspect]
     Active Substance: FRAXINUS AMERICANA POLLEN
     Indication: Skin test
     Dosage: UNK
     Route: 003
     Dates: start: 20220613
  25. ULMUS AMERICANA POLLEN [Suspect]
     Active Substance: ULMUS AMERICANA POLLEN
     Indication: Skin test
     Dosage: UNK
     Route: 003
     Dates: start: 20220613
  26. DACTYLIS GLOMERATA POLLEN [Suspect]
     Active Substance: DACTYLIS GLOMERATA POLLEN
     Indication: Skin test
     Dosage: UNK
     Route: 003
     Dates: start: 20220613
  27. ACER SACCHARUM POLLEN [Suspect]
     Active Substance: ACER SACCHARUM POLLEN
     Indication: Skin test
     Dosage: UNK
     Route: 003
     Dates: start: 20220613
  28. XANTHIUM STRUMARIUM POLLEN [Suspect]
     Active Substance: XANTHIUM STRUMARIUM POLLEN
     Indication: Skin test
     Dosage: UNK
     Route: 003
     Dates: start: 20220613
  29. PINUS STROBUS POLLEN [Suspect]
     Active Substance: PINUS STROBUS POLLEN
     Indication: Skin test
     Dosage: UNK
     Route: 003
     Dates: start: 20220613
  30. CHENOPODIUM ALBUM POLLEN [Suspect]
     Active Substance: CHENOPODIUM ALBUM POLLEN
     Indication: Skin test
     Dosage: UNK
     Route: 003
     Dates: start: 20220613
  31. POPULUS ALBA POLLEN [Suspect]
     Active Substance: POPULUS ALBA POLLEN
     Indication: Skin test
     Dosage: UNK
     Route: 003
     Dates: start: 20220613
  32. IVA ANNUA POLLEN [Suspect]
     Active Substance: IVA ANNUA POLLEN
     Indication: Skin test
     Dosage: UNK
     Route: 003
     Dates: start: 20220613
  33. PERIPLANETA AMERICANA [Suspect]
     Active Substance: PERIPLANETA AMERICANA
     Indication: Skin test
     Dosage: UNK
     Route: 003
     Dates: start: 20220613
  34. CANIS LUPUS FAMILIARIS SKIN [Suspect]
     Active Substance: CANIS LUPUS FAMILIARIS SKIN
     Indication: Skin test
     Dosage: UNK
     Route: 003
     Dates: start: 20220613
  35. MUS MUSCULUS SKIN [Suspect]
     Active Substance: MUS MUSCULUS SKIN
     Indication: Skin test
     Dosage: UNK
     Route: 003
     Dates: start: 20220613
  36. ANAS PLATYRHYNCHOS FEATHER\ANSER ANSER FEATHER\GALLUS GALLUS FEATHER [Suspect]
     Active Substance: ANAS PLATYRHYNCHOS FEATHER\ANSER ANSER FEATHER\GALLUS GALLUS FEATHER
     Indication: Skin test
     Dosage: UNK
     Route: 003
     Dates: start: 20220613
  37. ASPERGILLUS FUMIGATUS [Suspect]
     Active Substance: ASPERGILLUS FUMIGATUS
     Indication: Skin test
     Dosage: UNK
     Route: 003
     Dates: start: 20220613
  38. CLADOSPORIUM CLADOSPORIOIDES [Suspect]
     Active Substance: CLADOSPORIUM CLADOSPORIOIDES
     Indication: Skin test
     Dosage: UNK
     Route: 003
     Dates: start: 20220613
  39. STERILE DILUENT FOR ALLERGENIC EXTRACT NOS [Suspect]
     Active Substance: ALBUMIN HUMAN OR GLYCERIN OR PHENOL
     Indication: Skin test
     Dosage: UNK
     Route: 003
     Dates: start: 20220613
  40. STERILE DILUENT FOR ALLERGENIC EXTRACT NOS [Suspect]
     Active Substance: ALBUMIN HUMAN OR GLYCERIN OR PHENOL
     Dosage: UNK
     Route: 023

REACTIONS (5)
  - Peripheral swelling [Unknown]
  - Swelling face [Unknown]
  - Dyspnoea [Unknown]
  - Local reaction [Unknown]
  - False negative investigation result [Unknown]

NARRATIVE: CASE EVENT DATE: 20220613
